FAERS Safety Report 24139496 (Version 2)
Quarter: 2024Q3

REPORT INFORMATION
  Report Type: Spontaneous
  Country: JP (occurrence: JP)
  Receive Date: 20240726
  Receipt Date: 20240904
  Transmission Date: 20241017
  Serious: Yes (Disabling, Other)
  Sender: MERCK
  Company Number: JP-MSD-2405JPN000726J

PATIENT
  Age: 58 Year
  Sex: Male
  Weight: 52 kg

DRUGS (9)
  1. KEYTRUDA [Suspect]
     Active Substance: PEMBROLIZUMAB
     Indication: Metastatic salivary gland cancer
     Dosage: 200 MILLIGRAM, Q3W
     Route: 041
     Dates: start: 20210126, end: 20221021
  2. CORTRIL [Suspect]
     Active Substance: HYDROCORTISONE
     Indication: Immune-mediated adrenal insufficiency
     Dosage: 10 MG IN THE MORNING, 5 MG IN THE EVENING
     Route: 048
     Dates: start: 20211224, end: 20220113
  3. CORTRIL [Suspect]
     Active Substance: HYDROCORTISONE
     Dosage: 10 MILLIGRAM, QD
     Route: 048
     Dates: start: 20220114
  4. PREDNISOLONE [Suspect]
     Active Substance: PREDNISOLONE
     Indication: Interstitial lung disease
     Dosage: 30 MILLIGRAM, BID
     Route: 048
     Dates: start: 20221111, end: 20221124
  5. PREDNISOLONE [Suspect]
     Active Substance: PREDNISOLONE
     Dosage: 20 MILLIGRAM, BID
     Route: 048
     Dates: start: 20221125, end: 20221208
  6. PREDNISOLONE [Suspect]
     Active Substance: PREDNISOLONE
     Dosage: 15 MILLIGRAM, BID
     Route: 048
     Dates: start: 20221209, end: 20221222
  7. PREDNISOLONE [Suspect]
     Active Substance: PREDNISOLONE
     Dosage: 15 MILLIGRAM, QD
     Route: 048
     Dates: start: 20221223, end: 20230105
  8. CISPLATIN [Concomitant]
     Active Substance: CISPLATIN
     Indication: Metastatic salivary gland cancer
     Dosage: 120 MILLIGRAM, Q3W
     Route: 041
     Dates: start: 20210126, end: 20210528
  9. FLUOROURACIL [Concomitant]
     Active Substance: FLUOROURACIL
     Indication: Metastatic salivary gland cancer
     Dosage: 1200 MILLIGRAM, 3 TIMES IN 4 WEEKS
     Route: 041
     Dates: start: 20210126, end: 20210531

REACTIONS (4)
  - Hypozincaemia [Not Recovered/Not Resolved]
  - Gastric ulcer [Recovered/Resolved]
  - Immune-mediated adrenal insufficiency [Recovered/Resolved]
  - Interstitial lung disease [Recovering/Resolving]

NARRATIVE: CASE EVENT DATE: 20210601
